FAERS Safety Report 10038873 (Version 1)
Quarter: 2014Q1

REPORT INFORMATION
  Report Type: Spontaneous
  Country: GB (occurrence: GB)
  Receive Date: 20140326
  Receipt Date: 20140326
  Transmission Date: 20141002
  Serious: Yes (Other)
  Sender: FDA-Public Use
  Company Number: GB-ASTRAZENECA-2014SE18570

PATIENT
  Age: 29 Year
  Sex: Female
  Weight: 54.9 kg

DRUGS (2)
  1. OMEPRAZOLE [Suspect]
     Route: 048
     Dates: start: 201311, end: 201402
  2. MEBEVERINE [Concomitant]

REACTIONS (4)
  - Vision blurred [Recovering/Resolving]
  - Depression [Recovered/Resolved]
  - Night sweats [Recovered/Resolved]
  - Paraesthesia [Recovered/Resolved]
